FAERS Safety Report 4836796-4 (Version None)
Quarter: 2005Q4

REPORT INFORMATION
  Report Type: 
  Country: None (occurrence: None)
  Receive Date: 20051123
  Receipt Date: 20051004
  Transmission Date: 20060501
  Serious: Yes (Hospitalization)
  Sender: FDA-Public Use
  Company Number: US-MERCK-0510USA02297

PATIENT
  Age: 45 Year
  Sex: Female
  Weight: 102 kg

DRUGS (19)
  1. VIOXX [Suspect]
     Indication: ARTHRITIS
     Route: 048
     Dates: start: 20000606, end: 20010703
  2. VIOXX [Suspect]
     Route: 048
     Dates: start: 20000606, end: 20010703
  3. PEPCID [Concomitant]
     Route: 048
  4. ZOCOR [Concomitant]
     Route: 048
  5. ALPRAZOLAM [Concomitant]
     Route: 065
  6. HYDROCODONE HYDROCHLORIDE [Concomitant]
     Route: 065
  7. CARISOPRODOL [Concomitant]
     Route: 065
  8. PROZAC [Concomitant]
     Route: 065
  9. TRICOR [Concomitant]
     Route: 065
  10. ENALAPRIL MALEATE [Concomitant]
     Route: 065
  11. CEPHALEXIN [Concomitant]
     Route: 065
  12. DIFLUCAN [Concomitant]
     Route: 065
  13. FUROSEMIDE [Concomitant]
     Route: 065
  14. PREMARIN [Concomitant]
     Route: 065
  15. POTASSIUM CHLORIDE [Concomitant]
     Route: 065
  16. FLONASE [Concomitant]
     Route: 065
  17. INSULIN, BIPHASIC ISOPHANE [INJECTION] [Concomitant]
     Route: 065
  18. LORCET-HD [Concomitant]
     Route: 065
  19. NORVASC [Concomitant]
     Route: 065

REACTIONS (8)
  - ADVERSE EVENT [None]
  - ANGINA UNSTABLE [None]
  - CARDIAC DISORDER [None]
  - CHEST PAIN [None]
  - DEEP VEIN THROMBOSIS [None]
  - INFLUENZA [None]
  - LUNG INFECTION [None]
  - MYOCARDIAL INFARCTION [None]
